FAERS Safety Report 19045990 (Version 1)
Quarter: 2021Q1

REPORT INFORMATION
  Report Type: Spontaneous
  Country: US (occurrence: US)
  Receive Date: 20210323
  Receipt Date: 20210323
  Transmission Date: 20210420
  Serious: Yes (Hospitalization)
  Sender: FDA-Public Use
  Company Number: None

PATIENT
  Sex: Female

DRUGS (7)
  1. EVEROLIMUS. [Suspect]
     Active Substance: EVEROLIMUS
     Indication: CARCINOID SYNDROME
     Route: 048
     Dates: start: 20210215
  2. AFINITOR [Concomitant]
     Active Substance: EVEROLIMUS
  3. SINGULAIR [Concomitant]
     Active Substance: MONTELUKAST SODIUM
  4. NORCO [Concomitant]
     Active Substance: ACETAMINOPHEN\HYDROCODONE BITARTRATE
  5. ASPRIN LOW DOSE [Concomitant]
  6. AVAPRO [Concomitant]
     Active Substance: IRBESARTAN
  7. LOMOTIL [Concomitant]
     Active Substance: ATROPINE SULFATE\DIPHENOXYLATE HYDROCHLORIDE

REACTIONS (3)
  - Therapy interrupted [None]
  - Pneumonitis [None]
  - Pneumonia [None]
